FAERS Safety Report 13737245 (Version 1)
Quarter: 2017Q3

REPORT INFORMATION
  Report Type: Spontaneous
  Country: US (occurrence: US)
  Receive Date: 20170710
  Receipt Date: 20170710
  Transmission Date: 20171127
  Serious: Yes (Other)
  Sender: FDA-Public Use
  Company Number: US-SAOL THERAPEUTICS-2016SAO00220

PATIENT
  Age: 33 Year
  Sex: Male

DRUGS (8)
  1. LIORESAL [Suspect]
     Active Substance: BACLOFEN
     Dosage: 208.6 ?G/ML, \DAY
  2. BUSPIRONE [Concomitant]
     Active Substance: BUSPIRONE HYDROCHLORIDE
  3. LIORESAL [Suspect]
     Active Substance: BACLOFEN
     Dosage: 96.2 ?G, \DAY
     Route: 037
     Dates: start: 20160708
  4. BACLOFEN ( ORAL) [Concomitant]
     Route: 048
  5. SERTRALINE [Concomitant]
     Active Substance: SERTRALINE HYDROCHLORIDE
  6. LIORESAL [Suspect]
     Active Substance: BACLOFEN
     Dosage: UNK
     Dates: start: 2012
  7. LIORESAL [Suspect]
     Active Substance: BACLOFEN
     Dosage: 12.8 ?G, \DAY
     Route: 037
     Dates: start: 20160530
  8. VALIUM [Concomitant]
     Active Substance: DIAZEPAM

REACTIONS (2)
  - Complication associated with device [Unknown]
  - Therapeutic response decreased [Unknown]

NARRATIVE: CASE EVENT DATE: 201606
